FAERS Safety Report 5559822-6 (Version None)
Quarter: 2007Q4

REPORT INFORMATION
  Report Type: 
  Country: None (occurrence: None)
  Receive Date: 20071214
  Receipt Date: 20071010
  Transmission Date: 20080405
  Serious: No
  Sender: FDA-Public Use
  Company Number: US-ABBOTT-07P-163-0420922-00

PATIENT
  Sex: Female
  Weight: 58.112 kg

DRUGS (2)
  1. HUMIRA [Suspect]
     Indication: RHEUMATOID ARTHRITIS
     Route: 058
     Dates: start: 20070401, end: 20070601
  2. HUMIRA [Suspect]
     Route: 058
     Dates: start: 20070601

REACTIONS (7)
  - BLISTER [None]
  - FEELING COLD [None]
  - HERPES ZOSTER [None]
  - HOT FLUSH [None]
  - INJECTION SITE PAIN [None]
  - RASH [None]
  - SLUGGISHNESS [None]
